FAERS Safety Report 5734280-7 (Version None)
Quarter: 2008Q2

REPORT INFORMATION
  Report Type: 
  Country: None (occurrence: None)
  Receive Date: 20080512
  Receipt Date: 20080409
  Transmission Date: 20081010
  Serious: No
  Sender: FDA-Public Use
  Company Number: US-BAYER-200813490NA

PATIENT
  Age: 29 Year
  Sex: Female

DRUGS (1)
  1. CIPRO [Suspect]
     Indication: URINARY TRACT INFECTION
     Dosage: TOTAL DAILY DOSE: 500 MG  UNIT DOSE: 500 MG
     Route: 048
     Dates: start: 19890101

REACTIONS (4)
  - AGITATION [None]
  - COGNITIVE DISORDER [None]
  - PULSE ABNORMAL [None]
  - RESTLESSNESS [None]
